FAERS Safety Report 8511549-4 (Version None)
Quarter: 2012Q3

REPORT INFORMATION
  Report Type: 
  Country: None (occurrence: None)
  Receive Date: 20120716
  Receipt Date: 20120710
  Transmission Date: 20120928
  Serious: No
  Sender: FDA-Public Use
  Company Number: US-009507513-1207USA002561

PATIENT

DRUGS (7)
  1. RANITIDINE [Concomitant]
  2. HYDROCHLOROTHIAZIDE (+) LOSARTAN POTASSIUM [Concomitant]
  3. PEG-INTRON [Suspect]
     Indication: HEPATITIS C
     Dosage: UNK
     Dates: start: 20120709
  4. REBETOL [Suspect]
  5. ZANTAC [Concomitant]
  6. TELAPREVIR [Concomitant]
  7. ATENOLOL [Concomitant]

REACTIONS (2)
  - INJECTION SITE HAEMORRHAGE [None]
  - PRODUCT QUALITY ISSUE [None]
